FAERS Safety Report 7983497-X (Version None)
Quarter: 2011Q4

REPORT INFORMATION
  Report Type: 
  Country: None (occurrence: None)
  Receive Date: 20111215
  Receipt Date: 20111214
  Transmission Date: 20120403
  Serious: Yes (Other)
  Sender: FDA-Public Use
  Company Number: ES-ABBOTT-11P-144-0849463-00

PATIENT
  Age: 51 Year
  Sex: Female
  Weight: 80 kg

DRUGS (4)
  1. HUMIRA [Suspect]
     Route: 058
  2. HUMIRA [Suspect]
     Indication: PSORIASIS
     Route: 058
  3. HUMIRA [Suspect]
     Route: 058
  4. HUMIRA [Suspect]
     Dosage: 1 IN 2-3 WEEKS
     Route: 058
     Dates: start: 20090501, end: 20110801

REACTIONS (2)
  - ANTINUCLEAR ANTIBODY POSITIVE [None]
  - DNA ANTIBODY POSITIVE [None]
